FAERS Safety Report 17353849 (Version 2)
Quarter: 2020Q1

REPORT INFORMATION
  Report Type: Spontaneous
  Country: PT (occurrence: PT)
  Receive Date: 20200131
  Receipt Date: 20200220
  Transmission Date: 20200409
  Serious: Yes (Disabling)
  Sender: FDA-Public Use
  Company Number: PT-ABBVIE-20K-130-3253371-00

PATIENT
  Age: 43 Year
  Sex: Female

DRUGS (3)
  1. HUMIRA [Suspect]
     Active Substance: ADALIMUMAB
     Indication: ANKYLOSING SPONDYLITIS
     Dosage: 40MG DE 15/15 DIAS
     Route: 058
     Dates: start: 20181115, end: 20190920
  2. HUMIRA [Suspect]
     Active Substance: ADALIMUMAB
     Dosage: 40MG DE 15/15 DIAS
     Route: 058
     Dates: start: 20181115, end: 20190920
  3. HUMIRA [Suspect]
     Active Substance: ADALIMUMAB
     Dosage: 40MG DE 15/15 DIAS
     Route: 058
     Dates: start: 20181115, end: 20190920

REACTIONS (4)
  - Nail disorder [Recovered/Resolved]
  - Arthralgia [Recovered/Resolved]
  - Hypoacusis [Recovered/Resolved]
  - Paraesthesia [Recovered/Resolved]

NARRATIVE: CASE EVENT DATE: 20190601
